FAERS Safety Report 5167185-3 (Version None)
Quarter: 2006Q4

REPORT INFORMATION
  Report Type: 
  Country: None (occurrence: None)
  Receive Date: 20061130
  Receipt Date: 20061120
  Transmission Date: 20070319
  Serious: Yes (Hospitalization)
  Sender: FDA-Public Use
  Company Number: 2006AP001030

PATIENT
  Age: 5 Week
  Sex: Female

DRUGS (2)
  1. PAROXETINE HCL [Suspect]
     Dosage: 40 MG;TRPL;QD
     Route: 064
  2. OLANZAPINE [Suspect]
     Indication: PANIC DISORDER
     Dosage: 10MG;QD

REACTIONS (7)
  - AGITATION NEONATAL [None]
  - CONGENITAL ANOMALY [None]
  - DRUG EXPOSURE DURING PREGNANCY [None]
  - DRUG WITHDRAWAL SYNDROME NEONATAL [None]
  - HYPOGLYCAEMIA NEONATAL [None]
  - PREMATURE BABY [None]
  - SUPERNUMERARY NIPPLE [None]
